FAERS Safety Report 4503305-9 (Version None)
Quarter: 2004Q4

REPORT INFORMATION
  Report Type: 
  Country: None (occurrence: None)
  Receive Date: 20041112
  Receipt Date: 20041102
  Transmission Date: 20050328
  Serious: Yes (Death, Hospitalization)
  Sender: FDA-Public Use
  Company Number: 2004242956US

PATIENT
  Sex: Female
  Weight: 97.5 kg

DRUGS (1)
  1. CELEBREX [Suspect]
     Indication: OSTEOARTHRITIS
     Dosage: QD, ORAL
     Route: 048

REACTIONS (5)
  - ATRIAL FIBRILLATION [None]
  - CHRONIC OBSTRUCTIVE AIRWAYS DISEASE [None]
  - DRUG INTOLERANCE [None]
  - PULMONARY HYPERTENSION [None]
  - THERAPY NON-RESPONDER [None]
